FAERS Safety Report 14816159 (Version 1)
Quarter: 2018Q2

REPORT INFORMATION
  Report Type: Spontaneous
  Country: US (occurrence: US)
  Receive Date: 20180417
  Receipt Date: 20180417
  Transmission Date: 20180711
  Serious: No
  Sender: FDA-Public Use
  Company Number: None

PATIENT
  Age: 60 Year
  Sex: Female
  Weight: 67.5 kg

DRUGS (3)
  1. ADDERALL [Concomitant]
     Active Substance: AMPHETAMINE ASPARTATE\AMPHETAMINE SULFATE\DEXTROAMPHETAMINE SACCHARATE\DEXTROAMPHETAMINE SULFATE
  2. XANAX [Concomitant]
     Active Substance: ALPRAZOLAM
  3. GABAPENTIN. [Suspect]
     Active Substance: GABAPENTIN
     Indication: THERAPY CHANGE
     Dosage: ?          QUANTITY:1 TABLET(S);?
     Route: 048
     Dates: start: 20170101, end: 20180417

REACTIONS (3)
  - Somnolence [None]
  - Malaise [None]
  - Narcolepsy [None]

NARRATIVE: CASE EVENT DATE: 20170101
